FAERS Safety Report 21068222 (Version 3)
Quarter: 2022Q4

REPORT INFORMATION
  Report Type: Spontaneous
  Country: FR (occurrence: FR)
  Receive Date: 20220712
  Receipt Date: 20221014
  Transmission Date: 20230113
  Serious: No
  Sender: FDA-Public Use
  Company Number: FR-MYLANLABS-2022M1050762

PATIENT
  Age: 2 Year
  Sex: Male

DRUGS (1)
  1. DYMISTA [Suspect]
     Active Substance: AZELASTINE HYDROCHLORIDE\FLUTICASONE PROPIONATE
     Indication: Product used for unknown indication
     Dosage: UNK UNK, BID, (TWICE A DAY)
     Route: 045

REACTIONS (1)
  - Off label use [Unknown]
